FAERS Safety Report 22295557 (Version 2)
Quarter: 2023Q2

REPORT INFORMATION
  Report Type: Spontaneous
  Country: CN (occurrence: CN)
  Receive Date: 20230508
  Receipt Date: 20230522
  Transmission Date: 20230722
  Serious: Yes (Life-Threatening, Hospitalization, Other)
  Sender: FDA-Public Use
  Company Number: CN-BRISTOL-MYERS SQUIBB COMPANY-2023-063613

PATIENT
  Age: 41 Year
  Sex: Male

DRUGS (4)
  1. PACLITAXEL [Suspect]
     Active Substance: PACLITAXEL
     Indication: Cholangiocarcinoma
     Dosage: DISCONTINUED AFTER APPLYING 6 DOSES
     Route: 042
  2. CISPLATIN [Suspect]
     Active Substance: CISPLATIN
     Indication: Cholangiocarcinoma
     Dosage: 6 DOSES
  3. GEMCITABINE [Suspect]
     Active Substance: GEMCITABINE
     Indication: Cholangiocarcinoma
     Dosage: 6 DOSES, GEMCITABINE/NANOPARTICLE ALBUMIN-BOUND PACLITAXEL (NAB-PACLITAXEL) REGIMEN
  4. GEMCITABINE [Suspect]
     Active Substance: GEMCITABINE
     Dosage: RESUMED WITH A COMBINED REGIMEN OF GEMCITABINE/CISPLATIN

REACTIONS (2)
  - Wellens^ syndrome [Recovered/Resolved]
  - Off label use [Unknown]
